FAERS Safety Report 7753880-6 (Version None)
Quarter: 2011Q3

REPORT INFORMATION
  Report Type: 
  Country: None (occurrence: None)
  Receive Date: 20110915
  Receipt Date: 20110906
  Transmission Date: 20111222
  Serious: Yes (Hospitalization, Other)
  Sender: FDA-Public Use
  Company Number: US-ASTRAZENECA-2011SE53306

PATIENT
  Age: 47 Year
  Sex: Male

DRUGS (9)
  1. CALCIUM+D [Concomitant]
     Dosage: 600- 200 MG-UNIT, TWO TIMES A DAY
     Route: 048
  2. KETOCONAZOLE [Concomitant]
     Route: 048
  3. PAXIL [Concomitant]
     Route: 048
  4. MS CONTIN [Concomitant]
     Route: 048
  5. VANDETANIB [Suspect]
     Route: 048
  6. NIFEDIPINE [Concomitant]
     Route: 048
  7. HYDROCODONE BITARTRATE AND ACETAMINOPHEN [Concomitant]
     Dosage: 5-300 MG, EVERY FOUR HOURS
     Route: 048
  8. SPIRONOLACTONE [Concomitant]
     Route: 048
  9. POTASSIUM CHLORIDE CRYS CR [Concomitant]
     Route: 048

REACTIONS (5)
  - ASTHENIA [None]
  - BLOOD POTASSIUM INCREASED [None]
  - BLOOD CREATINE INCREASED [None]
  - NAUSEA [None]
  - ELECTROLYTE IMBALANCE [None]
